FAERS Safety Report 6984042-8 (Version None)
Quarter: 2010Q3

REPORT INFORMATION
  Report Type: 
  Country: None (occurrence: None)
  Receive Date: 20100915
  Receipt Date: 20090602
  Transmission Date: 20110219
  Serious: No
  Sender: FDA-Public Use
  Company Number: US-WYE-H09194209

PATIENT
  Sex: Female
  Weight: 90.8 kg

DRUGS (6)
  1. PRISTIQ [Suspect]
     Indication: MAJOR DEPRESSION
     Route: 048
     Dates: start: 20090401, end: 20090401
  2. PRISTIQ [Suspect]
     Route: 048
     Dates: start: 20090401, end: 20090401
  3. PRISTIQ [Suspect]
     Route: 048
     Dates: start: 20090401, end: 20090430
  4. XANAX [Concomitant]
  5. AMBIEN [Concomitant]
  6. LEXAPRO [Concomitant]

REACTIONS (4)
  - PAIN OF SKIN [None]
  - RASH [None]
  - RASH ERYTHEMATOUS [None]
  - RASH PRURITIC [None]
